FAERS Safety Report 17938624 (Version 2)
Quarter: 2020Q4

REPORT INFORMATION
  Report Type: Spontaneous
  Country: US (occurrence: US)
  Receive Date: 20200625
  Receipt Date: 20201215
  Transmission Date: 20210113
  Serious: No
  Sender: FDA-Public Use
  Company Number: US-ELI_LILLY_AND_COMPANY-US202006010353

PATIENT
  Age: 78 Year
  Sex: Male

DRUGS (13)
  1. BASAGLAR [Suspect]
     Active Substance: INSULIN GLARGINE
     Dosage: 5-20 U, DAILY
     Route: 058
  2. BASAGLAR [Suspect]
     Active Substance: INSULIN GLARGINE
     Dosage: 5-20 U, DAILY
     Route: 058
  3. TRADJENTA [Suspect]
     Active Substance: LINAGLIPTIN
     Indication: TYPE 2 DIABETES MELLITUS
     Dosage: UNK, DAILY (AT 13:00)
     Route: 065
  4. BASAGLAR [Suspect]
     Active Substance: INSULIN GLARGINE
     Dosage: 10 U, DAILY
     Route: 058
  5. BASAGLAR [Suspect]
     Active Substance: INSULIN GLARGINE
     Dosage: 5 U, DAILY (IN EVENING)
     Route: 058
  6. BASAGLAR [Suspect]
     Active Substance: INSULIN GLARGINE
     Dosage: 5 U, DAILY (IN EVENING)
     Route: 058
  7. BASAGLAR [Suspect]
     Active Substance: INSULIN GLARGINE
     Indication: TYPE 2 DIABETES MELLITUS
     Dosage: 5-20 U, DAILY
     Route: 058
     Dates: start: 20200601, end: 20200608
  8. BASAGLAR [Suspect]
     Active Substance: INSULIN GLARGINE
     Dosage: 10 U, DAILY
     Route: 058
  9. BASAGLAR [Suspect]
     Active Substance: INSULIN GLARGINE
     Dosage: 5-20 U, DAILY
     Route: 058
  10. METFORMIN [Concomitant]
     Active Substance: METFORMIN HYDROCHLORIDE
     Indication: PRODUCT USED FOR UNKNOWN INDICATION
     Dosage: 500 MG, BID
     Route: 065
  11. BASAGLAR [Suspect]
     Active Substance: INSULIN GLARGINE
     Indication: TYPE 2 DIABETES MELLITUS
     Dosage: 5-20 U, DAILY
     Route: 058
     Dates: start: 20200601, end: 20200608
  12. BASAGLAR [Suspect]
     Active Substance: INSULIN GLARGINE
     Dosage: 5-20 U, DAILY
     Route: 058
  13. BASAGLAR [Suspect]
     Active Substance: INSULIN GLARGINE
     Dosage: 5-20 U, DAILY
     Route: 058

REACTIONS (1)
  - Blood glucose increased [Recovering/Resolving]

NARRATIVE: CASE EVENT DATE: 20200601
